FAERS Safety Report 7619976 (Version 2)
Quarter: 2012Q4

REPORT INFORMATION
  Report Type: Report from Study
  Country: GB (occurrence: US)
  Receive Date: 20101007
  Receipt Date: 20121205
  Transmission Date: 20130627
  Serious: Yes (Hospitalization, Other)
  Sender: FDA-Public Use
  Company Number: US-BRISTOL-MYERS SQUIBB COMPANY-15011778

PATIENT
  Age: 72 Year
  Sex: Male
  Weight: 70.5 kg

DRUGS (3)
  1. CETUXIMAB [Suspect]
     Indication: GASTRIC CANCER
     Route: 042
     Dates: start: 20100205, end: 20100212
  2. OXALIPLATIN [Suspect]
     Indication: GASTRIC CANCER
     Route: 042
     Dates: start: 20100205, end: 20100212
  3. XELODA [Suspect]
     Indication: GASTRIC CANCER
     Route: 048
     Dates: start: 20100205, end: 20100212

REACTIONS (5)
  - Throat irritation [Unknown]
  - Hypokalaemia [Unknown]
  - Dehydration [Recovering/Resolving]
  - Vomiting [Recovering/Resolving]
  - Nausea [Recovering/Resolving]
